FAERS Safety Report 22287859 (Version 1)
Quarter: 2023Q2

REPORT INFORMATION
  Report Type: Spontaneous
  Country: IT (occurrence: IT)
  Receive Date: 20230505
  Receipt Date: 20230505
  Transmission Date: 20230721
  Serious: Yes (Life-Threatening, Hospitalization, Other)
  Sender: FDA-Public Use
  Company Number: IT-MLMSERVICE-20230419-4235576-1

PATIENT
  Age: 68 Year
  Sex: Male

DRUGS (10)
  1. ALLOPURINOL [Suspect]
     Active Substance: ALLOPURINOL
     Indication: Blood uric acid increased
  2. FUROSEMIDE [Concomitant]
     Active Substance: FUROSEMIDE
  3. REPAGLINIDE [Concomitant]
     Active Substance: REPAGLINIDE
  4. HYDROCHLOROTHIAZIDE, OLMESARTAN [Concomitant]
  5. CALCIUM CARBONATE [Concomitant]
     Active Substance: CALCIUM CARBONATE
     Route: 048
  6. NEBIVOLOL [Concomitant]
     Active Substance: NEBIVOLOL
  7. INSULIN GLARGINE [Concomitant]
     Active Substance: INSULIN GLARGINE
  8. IRON [Concomitant]
     Active Substance: IRON
     Route: 048
  9. CLOPIDOGREL [Concomitant]
     Active Substance: CLOPIDOGREL BISULFATE
  10. VITAMIN D [Concomitant]
     Active Substance: VITAMIN D NOS
     Route: 048

REACTIONS (8)
  - Klebsiella infection [Unknown]
  - Drug reaction with eosinophilia and systemic symptoms [Recovering/Resolving]
  - Toxic epidermal necrolysis [Recovering/Resolving]
  - Atrial fibrillation [Recovered/Resolved]
  - Kounis syndrome [Recovering/Resolving]
  - Pseudomonas infection [Unknown]
  - Stress cardiomyopathy [Recovering/Resolving]
  - Coronary artery disease [Recovering/Resolving]
